FAERS Safety Report 6027136-6 (Version None)
Quarter: 2008Q4

REPORT INFORMATION
  Report Type: 
  Country: None (occurrence: None)
  Receive Date: 20081231
  Receipt Date: 20081231
  Transmission Date: 20090506
  Serious: Yes (Hospitalization, Other)
  Sender: FDA-Public Use
  Company Number: None

PATIENT
  Age: 74 Year
  Sex: Male
  Weight: 83.4619 kg

DRUGS (2)
  1. INDOMETHACIN [Suspect]
     Indication: GOUT
     Dosage: 1 CAPSULE 3 PER DAY PO
     Route: 048
     Dates: start: 20081205, end: 20081207
  2. NAPROXEN [Suspect]
     Indication: GOUT
     Dosage: 1 TABLET 2 PER DAY PO
     Route: 048
     Dates: start: 20081216, end: 20081218

REACTIONS (2)
  - DIZZINESS [None]
  - LOSS OF CONSCIOUSNESS [None]
